FAERS Safety Report 15362526 (Version 1)
Quarter: 2018Q3

REPORT INFORMATION
  Report Type: Spontaneous
  Country: FR (occurrence: FR)
  Receive Date: 20180907
  Receipt Date: 20180907
  Transmission Date: 20181010
  Serious: Yes (Hospitalization, Other)
  Sender: FDA-Public Use
  Company Number: FR-PFIZER INC-2011181999

PATIENT
  Age: 65 Year
  Sex: Female

DRUGS (14)
  1. NOVATREX NOS [Suspect]
     Active Substance: AZITHROMYCIN OR METHOTREXATE SODIUM
     Indication: RHEUMATOID ARTHRITIS
     Dosage: 2.5 MG, UNK
     Route: 048
     Dates: start: 200504, end: 200610
  2. MABTHERA [Suspect]
     Active Substance: RITUXIMAB
     Dosage: CYCLIC DOSES
     Dates: start: 200905
  3. LEVOTHYROX [Concomitant]
     Active Substance: LEVOTHYROXINE
  4. ATACAND [Concomitant]
     Active Substance: CANDESARTAN CILEXETIL
  5. HUMIRA [Suspect]
     Active Substance: ADALIMUMAB
     Dosage: UNK
     Route: 058
     Dates: start: 200712, end: 200804
  6. CORTANCYL [Concomitant]
     Active Substance: PREDNISONE
     Indication: RHEUMATOID ARTHRITIS
     Dosage: UNK
     Dates: start: 1992
  7. NOVATREX NOS [Suspect]
     Active Substance: AZITHROMYCIN OR METHOTREXATE SODIUM
     Dosage: 2.5 MG, UNK
     Route: 048
     Dates: start: 20070626, end: 201106
  8. ENBREL [Suspect]
     Active Substance: ETANERCEPT
     Dosage: UNK
     Route: 058
     Dates: start: 20070626, end: 200712
  9. TOCILIZUMAB. [Concomitant]
     Active Substance: TOCILIZUMAB
     Indication: RHEUMATOID ARTHRITIS
     Dosage: UNK
     Dates: start: 20110427
  10. MABTHERA [Suspect]
     Active Substance: RITUXIMAB
     Dosage: CYCLIC DOSES
     Dates: start: 200810
  11. ORENCIA [Suspect]
     Active Substance: ABATACEPT
     Dosage: UNK
     Route: 041
     Dates: start: 20100830, end: 20110323
  12. MABTHERA [Suspect]
     Active Substance: RITUXIMAB
     Dosage: CYCLIC DOSES
     Dates: start: 200802
  13. MABTHERA [Suspect]
     Active Substance: RITUXIMAB
     Dosage: CYCLIC DOSES
     Dates: start: 201001
  14. MOPRAL [Concomitant]
     Active Substance: OMEPRAZOLE

REACTIONS (4)
  - Fall [Unknown]
  - Non-cardiac chest pain [Unknown]
  - Small cell lung cancer [Not Recovered/Not Resolved]
  - Wrist fracture [Unknown]

NARRATIVE: CASE EVENT DATE: 201106
